FAERS Safety Report 17698481 (Version 1)
Quarter: 2020Q2

REPORT INFORMATION
  Report Type: Spontaneous
  Country: US (occurrence: US)
  Receive Date: 20200422
  Receipt Date: 20200422
  Transmission Date: 20200714
  Serious: No
  Sender: FDA-Public Use
  Company Number: None

PATIENT
  Age: 89 Year
  Sex: Male
  Weight: 102.06 kg

DRUGS (20)
  1. ZYRTEC [Concomitant]
     Active Substance: CETIRIZINE HYDROCHLORIDE
  2. NEXIUM [Concomitant]
     Active Substance: ESOMEPRAZOLE MAGNESIUM
  3. LUPRON [Concomitant]
     Active Substance: LEUPROLIDE ACETATE
  4. LINTNESS [Concomitant]
  5. ATORVASTATIN [Concomitant]
     Active Substance: ATORVASTATIN
  6. ACETAMINOPHEN. [Concomitant]
     Active Substance: ACETAMINOPHEN
  7. TRAMADOL. [Concomitant]
     Active Substance: TRAMADOL
  8. LASIX [Concomitant]
     Active Substance: FUROSEMIDE
  9. ISOSORBIDE. [Concomitant]
     Active Substance: ISOSORBIDE
  10. IPRATROPIUM [Concomitant]
     Active Substance: IPRATROPIUM
  11. COLAVE [Concomitant]
  12. CASODEX [Concomitant]
     Active Substance: BICALUTAMIDE
  13. ARGININE [Concomitant]
     Active Substance: ARGININE
  14. LEVEMIR [Concomitant]
     Active Substance: INSULIN DETEMIR
  15. ERLEADA [Suspect]
     Active Substance: APALUTAMIDE
     Indication: PROSTATE CANCER
     Route: 048
  16. HYDROXYZINE [Concomitant]
     Active Substance: HYDROXYZINE HYDROCHLORIDE
  17. ASPIRIN. [Concomitant]
     Active Substance: ASPIRIN
  18. OXYCODONE [Concomitant]
     Active Substance: OXYCODONE
  19. ELIQUIS [Concomitant]
     Active Substance: APIXABAN
  20. BACLOFEN. [Concomitant]
     Active Substance: BACLOFEN

REACTIONS (1)
  - Rash pruritic [None]
